FAERS Safety Report 9431996 (Version 1)
Quarter: 2013Q3

REPORT INFORMATION
  Report Type: Report from Study
  Country: CA (occurrence: CA)
  Receive Date: 20130731
  Receipt Date: 20130731
  Transmission Date: 20140515
  Serious: Yes (Other)
  Sender: FDA-Public Use
  Company Number: CA-JNJFOC-20130717030

PATIENT
  Age: 30 Year
  Sex: Female

DRUGS (2)
  1. REMICADE [Suspect]
     Indication: RHEUMATOID ARTHRITIS
     Dosage: ONCE EVERY 5 TO 6 (INTERVAL UNSPECIFIED)
     Route: 042
  2. REMICADE [Suspect]
     Indication: PSORIASIS
     Dosage: ONCE EVERY 5 TO 6 (INTERVAL UNSPECIFIED)
     Route: 042

REACTIONS (2)
  - Herpes zoster [Unknown]
  - Subcutaneous abscess [Unknown]
